FAERS Safety Report 10762335 (Version 2)
Quarter: 2015Q3

REPORT INFORMATION
  Report Type: Spontaneous
  Country: US (occurrence: US)
  Receive Date: 20150204
  Receipt Date: 20150709
  Transmission Date: 20151125
  Serious: Yes (Hospitalization, Other)
  Sender: FDA-Public Use
  Company Number: US-009507513-1502USA001544

PATIENT
  Sex: Female
  Weight: 113.38 kg

DRUGS (3)
  1. JANUVIA [Suspect]
     Active Substance: SITAGLIPTIN PHOSPHATE
     Indication: TYPE 2 DIABETES MELLITUS
     Dosage: 100 MG, QD
     Route: 048
     Dates: start: 200704, end: 201310
  2. PREMARIN [Concomitant]
     Active Substance: ESTROGENS, CONJUGATED
     Indication: MENOPAUSE
     Dosage: 0.625 MG, QD
     Route: 048
     Dates: start: 1993, end: 201401
  3. METFORMIN [Concomitant]
     Active Substance: METFORMIN HYDROCHLORIDE
     Indication: TYPE 2 DIABETES MELLITUS
     Dosage: 1000 MG, BID
     Route: 048
     Dates: start: 20070827, end: 2014

REACTIONS (39)
  - Pneumonia [Unknown]
  - Retroperitoneal lymphadenopathy [Unknown]
  - Phlebolith [Unknown]
  - Hypercalcaemia of malignancy [Unknown]
  - Vascular calcification [Unknown]
  - Osteoporosis [Unknown]
  - Spinal osteoarthritis [Unknown]
  - Generalised oedema [Unknown]
  - Metastases to retroperitoneum [Unknown]
  - Bronchitis [Unknown]
  - Splenic artery aneurysm [Unknown]
  - Osteoarthritis [Unknown]
  - Swelling [Unknown]
  - Anaemia [Unknown]
  - Appendicectomy [Unknown]
  - Bronchitis [Unknown]
  - Hypomagnesaemia [Unknown]
  - Vitamin B12 deficiency [Unknown]
  - Bone disorder [Unknown]
  - Ascites [Unknown]
  - Hyponatraemia [Unknown]
  - Hypovolaemia [Unknown]
  - Arteriosclerosis coronary artery [Unknown]
  - Metastases to lymph nodes [Unknown]
  - Dehydration [Unknown]
  - Hypertension [Unknown]
  - Bone disorder [Unknown]
  - Pleural effusion [Unknown]
  - Atelectasis [Unknown]
  - Blood parathyroid hormone decreased [Unknown]
  - Blood 25-hydroxycholecalciferol increased [Unknown]
  - Hepatosplenomegaly [Unknown]
  - Lymphadenopathy [Unknown]
  - Coronary artery disease [Unknown]
  - Aortic calcification [Unknown]
  - Pancreatic neuroendocrine tumour metastatic [Unknown]
  - Metastases to liver [Unknown]
  - Hernia [Unknown]
  - Pulmonary fibrosis [Unknown]

NARRATIVE: CASE EVENT DATE: 20100611
